FAERS Safety Report 4327560-3 (Version None)
Quarter: 2004Q1

REPORT INFORMATION
  Report Type: 
  Country: None (occurrence: None)
  Receive Date: 20040325
  Receipt Date: 20040312
  Transmission Date: 20041129
  Serious: Yes (Other)
  Sender: FDA-Public Use
  Company Number: JP-SHR-04-022446

PATIENT
  Age: 69 Year
  Sex: Female

DRUGS (1)
  1. PROSCOPE 300 (IOPROMIDE) INFUSION [Suspect]
     Indication: ANGIOGRAM
     Dosage: 100 ML, 1 DOSE, INTRAVENOUS
     Route: 042
     Dates: start: 20040305, end: 20040305

REACTIONS (5)
  - BLOOD PRESSURE IMMEASURABLE [None]
  - DEPRESSED LEVEL OF CONSCIOUSNESS [None]
  - MUSCULOSKELETAL STIFFNESS [None]
  - SHOCK [None]
  - VOMITING [None]
